FAERS Safety Report 10250853 (Version 2)
Quarter: 2014Q4

REPORT INFORMATION
  Report Type: Spontaneous
  Country: US (occurrence: None)
  Receive Date: 20140618
  Receipt Date: 20141022
  Transmission Date: 20150528
  Serious: Yes (Hospitalization)
  Sender: FDA-Public Use
  Company Number: 54973 AE # 1541

PATIENT
  Age: 43 Year
  Sex: Male

DRUGS (1)
  1. HYLAND^S RESTFUL LEGS TABLETS [Suspect]
     Active Substance: HOMEOPATHICS
     Indication: MUSCLE SPASMS
     Dosage: 2 TABS SL QHS
     Route: 060

REACTIONS (6)
  - Hyperhidrosis [None]
  - Generalised tonic-clonic seizure [None]
  - Cold sweat [None]
  - Feeling abnormal [None]
  - Nausea [None]
  - Unresponsive to stimuli [None]

NARRATIVE: CASE EVENT DATE: 20140514
